FAERS Safety Report 10204582 (Version 1)
Quarter: 2014Q2

REPORT INFORMATION
  Report Type: Spontaneous
  Country: US (occurrence: None)
  Receive Date: 20140527
  Receipt Date: 20140527
  Transmission Date: 20141212
  Serious: No
  Sender: FDA-Public Use
  Company Number: None

PATIENT
  Age: 45 Year
  Sex: Female

DRUGS (4)
  1. CYCLOSPORINE [Suspect]
     Indication: APLASTIC ANAEMIA
     Dates: start: 20130131, end: 20130207
  2. ACYCLOVIR [Concomitant]
  3. BACTRIM [Concomitant]
  4. ANTITHYMOCYTE GLOBULIN [Concomitant]

REACTIONS (6)
  - Bone marrow transplant [None]
  - Hepatocellular injury [None]
  - Blood bilirubin increased [None]
  - Aspartate aminotransferase increased [None]
  - Alanine aminotransferase increased [None]
  - Blood alkaline phosphatase increased [None]
